FAERS Safety Report 24443675 (Version 2)
Quarter: 2024Q4

REPORT INFORMATION
  Report Type: Report from Study
  Country: US (occurrence: US)
  Receive Date: 20241016
  Receipt Date: 20241017
  Transmission Date: 20250114
  Serious: No
  Sender: ROCHE
  Company Number: US-ROCHE-1933903

PATIENT
  Age: 57 Year
  Sex: Female

DRUGS (2)
  1. RITUXAN [Suspect]
     Active Substance: RITUXIMAB
     Indication: Cerebral arteritis
     Dosage: REPEAT EVERY 6 MONTHS? FREQUENCY TEXT:ON DAY 1 AND DAY 15
     Route: 042
  2. RITUXAN [Suspect]
     Active Substance: RITUXIMAB
     Route: 042
     Dates: start: 20211124

REACTIONS (2)
  - Off label use [Unknown]
  - No adverse event [Unknown]
